FAERS Safety Report 19072909 (Version 2)
Quarter: 2021Q1

REPORT INFORMATION
  Report Type: Spontaneous
  Country: GB (occurrence: GB)
  Receive Date: 20210330
  Receipt Date: 20210331
  Transmission Date: 20210420
  Serious: Yes (Other)
  Sender: FDA-Public Use
  Company Number: GB-ASCEND THERAPEUTICS US, LLC-2108588

PATIENT
  Sex: Female

DRUGS (7)
  1. TESTOSTERONE. [Suspect]
     Active Substance: TESTOSTERONE
     Route: 065
  2. ESTROGEL [Suspect]
     Active Substance: ESTRADIOL
     Indication: PRODUCT USED FOR UNKNOWN INDICATION
     Route: 065
     Dates: start: 202101, end: 2021
  3. OESTRODOSE (ESTRADIOL HEMIHYDRATE, ESTRADIOL) (GEL) [Suspect]
     Active Substance: ESTRADIOL
     Route: 065
     Dates: start: 202101, end: 2021
  4. ESTROGEL [Suspect]
     Active Substance: ESTRADIOL
     Route: 065
     Dates: start: 202011, end: 202101
  5. ESTROGEL [Suspect]
     Active Substance: ESTRADIOL
  6. ESTROGEL [Suspect]
     Active Substance: ESTRADIOL
     Route: 065
  7. ESTROGEL [Suspect]
     Active Substance: ESTRADIOL
     Route: 065
     Dates: start: 2021

REACTIONS (17)
  - Arthralgia [Recovering/Resolving]
  - Parosmia [Recovering/Resolving]
  - Dry skin [Recovering/Resolving]
  - Pollakiuria [Recovering/Resolving]
  - Malaise [Recovering/Resolving]
  - Pruritus [Recovering/Resolving]
  - Candida infection [Recovering/Resolving]
  - Headache [Recovering/Resolving]
  - Fatigue [Recovering/Resolving]
  - Temperature intolerance [Recovering/Resolving]
  - Product prescribing issue [Unknown]
  - Depression suicidal [Recovering/Resolving]
  - Hyperacusis [Recovering/Resolving]
  - Libido decreased [Recovering/Resolving]
  - Product label issue [Unknown]
  - Feeling abnormal [Recovering/Resolving]
  - Photosensitivity reaction [Recovering/Resolving]

NARRATIVE: CASE EVENT DATE: 2021
